FAERS Safety Report 7967306-0 (Version None)
Quarter: 2011Q4

REPORT INFORMATION
  Report Type: 
  Country: None (occurrence: None)
  Receive Date: 20111209
  Receipt Date: 20111201
  Transmission Date: 20120403
  Serious: Yes (Hospitalization, Other)
  Sender: FDA-Public Use
  Company Number: GB-JNJFOC-20111201100

PATIENT
  Sex: Male
  Weight: 141 kg

DRUGS (1)
  1. USTEKINUMAB [Suspect]
     Indication: PSORIASIS
     Route: 058
     Dates: start: 20101215

REACTIONS (2)
  - LOWER RESPIRATORY TRACT INFECTION [None]
  - BLINDNESS [None]
